FAERS Safety Report 13726486 (Version 2)
Quarter: 2017Q3

REPORT INFORMATION
  Report Type: Spontaneous
  Country: GB (occurrence: GB)
  Receive Date: 20170707
  Receipt Date: 20170906
  Transmission Date: 20171127
  Serious: Yes (Life-Threatening, Hospitalization)
  Sender: FDA-Public Use
  Company Number: GB-PFIZER INC-2017290229

PATIENT
  Age: 15 Year
  Sex: Female
  Weight: 33 kg

DRUGS (7)
  1. SOMATROPIN. [Suspect]
     Active Substance: SOMATROPIN
     Indication: TURNER^S SYNDROME
     Dosage: 1.2 MG, INCREASED EVERY 2-4 MONTHS
     Route: 058
     Dates: start: 20160217
  2. IBUPROFEN. [Concomitant]
     Active Substance: IBUPROFEN
     Dosage: UNK
  3. OESTRADIOL [Concomitant]
     Active Substance: ESTROGENS
     Dosage: UNK
  4. EVOREL [Concomitant]
     Indication: PRIMARY HYPOGONADISM
     Dosage: 6.25 UG, 1X/DAY
     Dates: start: 20170208
  5. PARACETAMOL [Concomitant]
     Active Substance: ACETAMINOPHEN
     Dosage: UNK
  6. SOMATROPIN. [Suspect]
     Active Substance: SOMATROPIN
     Indication: BODY HEIGHT BELOW NORMAL
     Dosage: 1.7 MG, 1X/DAY
     Route: 058
     Dates: end: 20170613
  7. CODEINE [Concomitant]
     Active Substance: CODEINE
     Dosage: UNK

REACTIONS (10)
  - Mass [Unknown]
  - Gait disturbance [Unknown]
  - Spinal cord compression [Unknown]
  - Bone marrow infiltration [Unknown]
  - Gait inability [Unknown]
  - Urinary retention [Unknown]
  - Alveolar rhabdomyosarcoma [Unknown]
  - Lymphadenopathy [Unknown]
  - Pleural disorder [Unknown]
  - Pain in extremity [Unknown]

NARRATIVE: CASE EVENT DATE: 201702
